FAERS Safety Report 21965855 (Version 1)
Quarter: 2023Q1

REPORT INFORMATION
  Report Type: Spontaneous
  Country: ES (occurrence: ES)
  Receive Date: 20230208
  Receipt Date: 20230208
  Transmission Date: 20230417
  Serious: Yes (Hospitalization)
  Sender: FDA-Public Use
  Company Number: None

PATIENT
  Age: 49 Year
  Sex: Male

DRUGS (1)
  1. EPIRUBICIN [Suspect]
     Active Substance: EPIRUBICIN
     Indication: Product used for unknown indication
     Dosage: EPIRUBICINA (364A)
     Route: 065
     Dates: start: 20221006, end: 20221127

REACTIONS (1)
  - Pancytopenia [Recovered/Resolved]

NARRATIVE: CASE EVENT DATE: 20221202
